FAERS Safety Report 18473048 (Version 1)
Quarter: 2020Q4

REPORT INFORMATION
  Report Type: Spontaneous
  Country: JP (occurrence: JP)
  Receive Date: 20201106
  Receipt Date: 20201106
  Transmission Date: 20210114
  Serious: Yes (Other)
  Sender: FDA-Public Use
  Company Number: NVSC2020JP294477

PATIENT

DRUGS (1)
  1. RIVASTACH [Suspect]
     Active Substance: RIVASTIGMINE
     Indication: DEMENTIA ALZHEIMER^S TYPE
     Dosage: 18 MG, QD
     Route: 062

REACTIONS (4)
  - Bedridden [Unknown]
  - Bradycardia [Unknown]
  - Unresponsive to stimuli [Unknown]
  - Dysphagia [Unknown]
